FAERS Safety Report 9276486 (Version 1)
Quarter: 2013Q2

REPORT INFORMATION
  Report Type: Report from Study
  Country: CA (occurrence: CA)
  Receive Date: 20130507
  Receipt Date: 20130507
  Transmission Date: 20140414
  Serious: Yes (Hospitalization)
  Sender: FDA-Public Use
  Company Number: CA-JNJFOC-20130416501

PATIENT
  Age: 45 Year
  Sex: Male
  Weight: 69.4 kg

DRUGS (3)
  1. REMICADE [Suspect]
     Indication: CROHN^S DISEASE
     Route: 042
     Dates: start: 20121102
  2. CLONAZEPAM [Concomitant]
     Route: 048
  3. DILAUDID [Concomitant]
     Dosage: PRN
     Route: 048

REACTIONS (2)
  - Burns second degree [Recovering/Resolving]
  - Wound infection [Recovering/Resolving]
